FAERS Safety Report 20152748 (Version 1)
Quarter: 2021Q4

REPORT INFORMATION
  Report Type: Report from Study
  Country: BG (occurrence: BG)
  Receive Date: 20211206
  Receipt Date: 20211206
  Transmission Date: 20220303
  Serious: Yes (Other)
  Sender: FDA-Public Use
  Company Number: BG-BAYER-2021A259648

PATIENT
  Age: 66 Year
  Sex: Female

DRUGS (1)
  1. STIVARGA [Suspect]
     Active Substance: REGORAFENIB
     Indication: Colorectal cancer
     Dosage: DAILY DOSE 160 MG (3/1 PER WEEK)
     Route: 048
     Dates: start: 20210805, end: 20210909

REACTIONS (3)
  - Toxicity to various agents [None]
  - White blood cell count decreased [None]
  - Rash pruritic [None]

NARRATIVE: CASE EVENT DATE: 20210909
